FAERS Safety Report 6341695-5 (Version None)
Quarter: 2009Q3

REPORT INFORMATION
  Report Type: 
  Country: None (occurrence: None)
  Receive Date: 20090904
  Receipt Date: 20090825
  Transmission Date: 20100115
  Serious: Yes (Death, Hospitalization, Other)
  Sender: FDA-Public Use
  Company Number: JP-NOVOPROD-288495

PATIENT
  Age: 76 Year
  Sex: Male
  Weight: 50 kg

DRUGS (5)
  1. NOVOSEVEN [Suspect]
     Indication: FACTOR VIII DEFICIENCY
     Dosage: 4.8 MG, UNK
     Route: 042
     Dates: start: 20090308, end: 20090423
  2. TAKEPRON [Concomitant]
     Dosage: 30 MG, QD
     Route: 048
     Dates: start: 20080908, end: 20090523
  3. AMLODIPIN                          /00972402/ [Concomitant]
     Dosage: 5 MG, QD
     Route: 048
     Dates: start: 20080908, end: 20090523
  4. MUCOSTA [Concomitant]
     Dosage: 300 MG, QD
     Route: 048
     Dates: start: 20081023, end: 20090523
  5. MAGMITT [Concomitant]
     Dosage: 750 MG, QD
     Route: 042
     Dates: start: 20081218, end: 20090523

REACTIONS (8)
  - ANAEMIA [None]
  - BACTERAEMIA [None]
  - DUODENITIS [None]
  - FUNGAL INFECTION [None]
  - MULTI-ORGAN FAILURE [None]
  - PANCREATITIS [None]
  - PERITONITIS [None]
  - SUBILEUS [None]
